FAERS Safety Report 18537811 (Version 2)
Quarter: 2020Q4

REPORT INFORMATION
  Report Type: Spontaneous
  Country: US (occurrence: US)
  Receive Date: 20201123
  Receipt Date: 20201127
  Transmission Date: 20210114
  Serious: Yes (Other)
  Sender: FDA-Public Use
  Company Number: US-SUNOVION-2020SUN003471

PATIENT
  Sex: Male

DRUGS (4)
  1. LATUDA [Suspect]
     Active Substance: LURASIDONE HYDROCHLORIDE
     Indication: SCHIZOPHRENIA
     Dosage: 40 MG
     Route: 048
     Dates: start: 20201115
  2. OLANZAPINE. [Concomitant]
     Active Substance: OLANZAPINE
  3. ABILIFY [Concomitant]
     Active Substance: ARIPIPRAZOLE
  4. INVEGA [Suspect]
     Active Substance: PALIPERIDONE
     Dosage: UNK

REACTIONS (2)
  - Ejaculation failure [Unknown]
  - Erectile dysfunction [Unknown]
